FAERS Safety Report 8518517-7 (Version None)
Quarter: 2012Q3

REPORT INFORMATION
  Report Type: 
  Country: None (occurrence: None)
  Receive Date: 20120718
  Receipt Date: 20120710
  Transmission Date: 20120928
  Serious: Yes (Hospitalization)
  Sender: FDA-Public Use
  Company Number: ES-GLAXOSMITHKLINE-Z0015140A

PATIENT
  Sex: Female
  Weight: 56 kg

DRUGS (2)
  1. OFATUMUMAB [Suspect]
     Indication: CHRONIC LYMPHOCYTIC LEUKAEMIA
     Route: 042
     Dates: start: 20120306
  2. ACETAMINOPHEN [Concomitant]
     Indication: PAIN PROPHYLAXIS
     Dosage: 1G SINGLE DOSE
     Route: 048
     Dates: start: 20120411, end: 20120411

REACTIONS (1)
  - FEBRILE NEUTROPENIA [None]
